FAERS Safety Report 9801955 (Version 1)
Quarter: 2014Q1

REPORT INFORMATION
  Report Type: Report from Study
  Country: BR (occurrence: BR)
  Receive Date: 20140107
  Receipt Date: 20140107
  Transmission Date: 20141002
  Serious: Yes (Hospitalization, Disabling)
  Sender: FDA-Public Use
  Company Number: PHHY2014BR001257

PATIENT
  Sex: Male
  Weight: 75 kg

DRUGS (1)
  1. EXELON PATCH [Suspect]
     Indication: DEMENTIA ALZHEIMER^S TYPE
     Dosage: 9.5MG/24 HRS (18MG/10CM2)), UNK
     Route: 062

REACTIONS (1)
  - Abasia [Unknown]
